FAERS Safety Report 8054503-1 (Version None)
Quarter: 2012Q1

REPORT INFORMATION
  Report Type: 
  Country: None (occurrence: None)
  Receive Date: 20120118
  Receipt Date: 20120109
  Transmission Date: 20120608
  Serious: Yes (Hospitalization)
  Sender: FDA-Public Use
  Company Number: FR-MERCK-1201FRA00047

PATIENT
  Age: 72 Year
  Sex: Male
  Weight: 73 kg

DRUGS (9)
  1. METFORMIN [Concomitant]
     Route: 048
     Dates: start: 20110220
  2. GLYBURIDE [Concomitant]
     Route: 048
     Dates: start: 20110220, end: 20110907
  3. INSULIN GLARGINE [Concomitant]
     Route: 051
     Dates: end: 20110907
  4. INSULIN GLARGINE [Concomitant]
     Route: 051
     Dates: start: 20110907
  5. JANUVIA [Suspect]
     Indication: TYPE 2 DIABETES MELLITUS
     Route: 048
     Dates: start: 20100903, end: 20111017
  6. INSULIN GLULISINE [Concomitant]
     Route: 051
     Dates: start: 20111017
  7. METFORMIN [Concomitant]
     Indication: TYPE 2 DIABETES MELLITUS
     Route: 048
  8. GLYBURIDE [Concomitant]
     Route: 048
     Dates: start: 20110220, end: 20111017
  9. METFORMIN [Concomitant]
     Route: 048
     Dates: end: 20110220

REACTIONS (3)
  - HYPOGLYCAEMIA [None]
  - DRUG INEFFECTIVE [None]
  - SPINAL DISORDER [None]
